FAERS Safety Report 7519195-6 (Version None)
Quarter: 2011Q2

REPORT INFORMATION
  Report Type: 
  Country: None (occurrence: None)
  Receive Date: 20110602
  Receipt Date: 20110411
  Transmission Date: 20111010
  Serious: No
  Sender: FDA-Public Use
  Company Number: US-BRISTOL-MYERS SQUIBB COMPANY-15668775

PATIENT
  Sex: Male

DRUGS (2)
  1. METFORMIN HCL [Suspect]
     Dosage: AN EXTRA 1000 MG OF METFORMIN IR EACH EVENING
  2. KOMBIGLYZE XR [Suspect]
     Dosage: 1DF= KOMBIGLYZE XR 5/1000 IN THE MORNINGS

REACTIONS (1)
  - BLOOD GLUCOSE INCREASED [None]
